FAERS Safety Report 16965336 (Version 1)
Quarter: 2019Q4

REPORT INFORMATION
  Report Type: Spontaneous
  Country: SE (occurrence: SE)
  Receive Date: 20191028
  Receipt Date: 20191028
  Transmission Date: 20200122
  Serious: Yes (Death, Other)
  Sender: FDA-Public Use
  Company Number: SE-SCIEGEN PHARMACEUTICALS INC-2019SCILIT00309

PATIENT
  Age: 69 Year
  Sex: Male

DRUGS (2)
  1. ANGIOTENSIN CONVERTING ENZYME INHIBITORS [Interacting]
     Active Substance: UNSPECIFIED INGREDIENT
  2. METFORMIN HYDROCHLORIDETABLETS [Suspect]
     Active Substance: METFORMIN HYDROCHLORIDE

REACTIONS (2)
  - Toxicity to various agents [Fatal]
  - Drug interaction [Unknown]
